FAERS Safety Report 19477605 (Version 3)
Quarter: 2021Q3

REPORT INFORMATION
  Report Type: Spontaneous
  Country: IT (occurrence: IT)
  Receive Date: 20210630
  Receipt Date: 20210827
  Transmission Date: 20211014
  Serious: Yes (Hospitalization, Other)
  Sender: FDA-Public Use
  Company Number: IT-OTSUKA-2021_022004

PATIENT
  Age: 50 Year
  Sex: Female

DRUGS (4)
  1. OLANZAPINE. [Suspect]
     Active Substance: OLANZAPINE
     Indication: SUICIDE ATTEMPT
     Dosage: 55 MG, UNK
     Route: 048
     Dates: start: 20210430, end: 20210501
  2. ABILIFY [Suspect]
     Active Substance: ARIPIPRAZOLE
     Indication: SUICIDE ATTEMPT
     Dosage: 6 DF, UNK
     Route: 048
     Dates: start: 20210430, end: 20210501
  3. DULOXETINE HYDROCHLORIDE. [Suspect]
     Active Substance: DULOXETINE HYDROCHLORIDE
     Indication: SUICIDE ATTEMPT
     Dosage: 360 MG, UNK
     Route: 048
     Dates: start: 20210430, end: 20210501
  4. XANAX [Suspect]
     Active Substance: ALPRAZOLAM
     Indication: SUICIDE ATTEMPT
     Dosage: 6 DF, UNK
     Route: 048
     Dates: start: 20210430, end: 20210501

REACTIONS (7)
  - Product use in unapproved indication [Unknown]
  - Drug abuse [Unknown]
  - Bundle branch block right [Recovered/Resolved]
  - Suicide attempt [Recovered/Resolved]
  - Sinus tachycardia [Recovered/Resolved]
  - Sopor [Recovered/Resolved]
  - Loss of consciousness [Recovered/Resolved]

NARRATIVE: CASE EVENT DATE: 20210430
